FAERS Safety Report 7534592-0 (Version None)
Quarter: 2011Q2

REPORT INFORMATION
  Report Type: 
  Country: None (occurrence: None)
  Receive Date: 20110609
  Receipt Date: 20100108
  Transmission Date: 20111010
  Serious: Yes (Hospitalization, Other)
  Sender: FDA-Public Use
  Company Number: PHHY2009DE28188

PATIENT
  Sex: Female
  Weight: 68 kg

DRUGS (6)
  1. VERTIGO-NEOGAMA [Concomitant]
     Dosage: UNK
     Dates: start: 20010101
  2. PANTOPRAZOLE [Concomitant]
     Dosage: UNK
     Dates: start: 20000101
  3. MELIOR [Concomitant]
     Dosage: UNK
     Dates: start: 20080702
  4. LEVOTHYROXINE SODIUM [Concomitant]
     Dosage: UNK
     Dates: start: 19920901
  5. RADIOTHERAPY [Concomitant]
     Dosage: UNK
     Dates: start: 20080602, end: 20080718
  6. FEMARA [Suspect]
     Indication: BREAST CANCER
     Dosage: 2.5 MG, QD
     Route: 048
     Dates: start: 20080703, end: 20090602

REACTIONS (4)
  - DYSPHAGIA [None]
  - MEMORY IMPAIRMENT [None]
  - GASTRITIS [None]
  - ABDOMINAL DISCOMFORT [None]
